FAERS Safety Report 4884474-8 (Version None)
Quarter: 2006Q1

REPORT INFORMATION
  Report Type: 
  Country: None (occurrence: None)
  Receive Date: 20060117
  Receipt Date: 20060104
  Transmission Date: 20060701
  Serious: Yes (Hospitalization, Other)
  Sender: FDA-Public Use
  Company Number: 2006005638

PATIENT
  Age: 70 Year
  Sex: Female
  Weight: 63.9572 kg

DRUGS (2)
  1. BENADRYL [Suspect]
     Indication: HYPERSENSITIVITY
     Dosage: 25 MG TWICE DAILY PRN, ORAL
     Route: 048
     Dates: end: 20050101
  2. DIPHENHYDRAMINE HCL [Suspect]
     Indication: PREMEDICATION
     Dosage: INTRAVENOUS
     Route: 042
     Dates: start: 20020101, end: 20050101

REACTIONS (10)
  - ANAPHYLACTIC REACTION [None]
  - BLOOD PRESSURE DECREASED [None]
  - BODY TEMPERATURE INCREASED [None]
  - BREAST CANCER [None]
  - CHILLS [None]
  - FEELING ABNORMAL [None]
  - HEADACHE [None]
  - METASTASES TO LUNG [None]
  - NASAL DRYNESS [None]
  - SINUS DISORDER [None]
